FAERS Safety Report 23652199 (Version 1)
Quarter: 2024Q1

REPORT INFORMATION
  Report Type: Spontaneous
  Country: IT (occurrence: IT)
  Receive Date: 20240320
  Receipt Date: 20240320
  Transmission Date: 20240409
  Serious: Yes (Other)
  Sender: FDA-Public Use
  Company Number: None

PATIENT
  Age: 75 Year
  Sex: Male
  Weight: 65 kg

DRUGS (2)
  1. PEMETREXED [Suspect]
     Active Substance: PEMETREXED
     Indication: Lung neoplasm malignant
     Dosage: START OF THERAPY 01/09/2024 - THERAPY EVERY 21 DAYS - 1ST CYCLE
     Route: 042
     Dates: start: 20240109, end: 20240109
  2. CARBOPLATIN [Suspect]
     Active Substance: CARBOPLATIN
     Indication: Lung neoplasm malignant
     Dosage: START OF THERAPY 01/09/2024 - THERAPY EVERY 21 DAYS - 1ST CYCLE, CARBOPLATINO
     Route: 042
     Dates: start: 20240109, end: 20240109

REACTIONS (4)
  - Thrombocytopenia [Recovering/Resolving]
  - Haemoglobin decreased [Recovering/Resolving]
  - Neutropenia [Recovering/Resolving]
  - Leukopenia [Recovering/Resolving]

NARRATIVE: CASE EVENT DATE: 20240130
